FAERS Safety Report 8009282-0 (Version None)
Quarter: 2011Q4

REPORT INFORMATION
  Report Type: 
  Country: None (occurrence: None)
  Receive Date: 20111227
  Receipt Date: 20111222
  Transmission Date: 20120403
  Serious: Yes (Other)
  Sender: FDA-Public Use
  Company Number: CHPA2011US018536

PATIENT
  Age: 77 Year
  Sex: Female

DRUGS (1)
  1. BENEFIBER W/ WHEAT DEXTRIN [Suspect]
     Dosage: 2 TSP, QD
     Route: 048
     Dates: end: 20111222

REACTIONS (2)
  - ASTHMA [None]
  - UNDERDOSE [None]
